FAERS Safety Report 9460245 (Version 2)
Quarter: 2013Q3

REPORT INFORMATION
  Report Type: Report from Study
  Country: US (occurrence: US)
  Receive Date: 20130815
  Receipt Date: 20130905
  Transmission Date: 20140515
  Serious: Yes (Other)
  Sender: FDA-Public Use
  Company Number: US-NAPPMUNDI-USA-2013-0105259

PATIENT
  Age: 60 Year
  Sex: Male
  Weight: 76.64 kg

DRUGS (1)
  1. OXYCONTIN (NDA 22-272) [Suspect]
     Indication: PAIN
     Dosage: 80 MG, Q8H
     Route: 048

REACTIONS (8)
  - Hip fracture [Unknown]
  - Fall [Recovered/Resolved]
  - Rotator cuff syndrome [Unknown]
  - Drug dependence [Unknown]
  - Injury [Unknown]
  - Pain [Unknown]
  - Back pain [Unknown]
  - Drug tolerance [Unknown]
